FAERS Safety Report 9653171 (Version 2)
Quarter: 2013Q4

REPORT INFORMATION
  Report Type: Spontaneous
  Country: US (occurrence: US)
  Receive Date: 20131029
  Receipt Date: 20131210
  Transmission Date: 20140711
  Serious: Yes (Other)
  Sender: FDA-Public Use
  Company Number: US-PFIZER INC-2013307601

PATIENT
  Age: 69 Year
  Sex: Male
  Weight: 116 kg

DRUGS (1)
  1. VIAGRA [Suspect]
     Indication: ERECTILE DYSFUNCTION
     Dosage: ^20 MG^, AS NEEDED
     Dates: start: 201302

REACTIONS (2)
  - Prostate cancer [Not Recovered/Not Resolved]
  - Neoplasm malignant [Unknown]
